FAERS Safety Report 4853126-2 (Version None)
Quarter: 2005Q4

REPORT INFORMATION
  Report Type: 
  Country: None (occurrence: None)
  Receive Date: 20051212
  Receipt Date: 20051118
  Transmission Date: 20060501
  Serious: Yes (Other)
  Sender: FDA-Public Use
  Company Number: USA0510111519

PATIENT
  Age: 85 Year
  Sex: Female
  Weight: 49.9 kg

DRUGS (13)
  1. FORTEO [Suspect]
     Indication: OSTEOPOROSIS
     Dosage: 20 UG DAILY (1/D)
     Dates: start: 20051004
  2. FORTEO PEN 250MCG/ML(3ML) (FORTEO PEN 250MCG/ML (3ML)) [Concomitant]
  3. FORTEO PEN,DISPOSABLE [Concomitant]
  4. FORTEOPEN,250MCG/ML(3ML) (FORTEO PEN 250MCG/ML (3ML)) PEN, DISPOSABLE [Concomitant]
  5. ZELNORM [Concomitant]
  6. MIRALAX [Concomitant]
  7. COLACE (DOCUSATE SODIUM) [Concomitant]
  8. MILK OF MAGNESIA TAB [Concomitant]
  9. NEXIUM [Concomitant]
  10. EFFEXOR [Concomitant]
  11. XANAX [Concomitant]
  12. CALTRO (CALCIUM, ERGOCALCIFEROL) [Concomitant]
  13. CARBIDOPA [Concomitant]

REACTIONS (2)
  - ANGIONEUROTIC OEDEMA [None]
  - PHARMACEUTICAL PRODUCT COMPLAINT [None]
